FAERS Safety Report 20487088 (Version 1)
Quarter: 2022Q1

REPORT INFORMATION
  Report Type: Spontaneous
  Country: US (occurrence: US)
  Receive Date: 20220217
  Receipt Date: 20220217
  Transmission Date: 20220423
  Serious: No
  Sender: FDA-Public Use
  Company Number: US-009507513-2202USA002335

PATIENT
  Sex: Male

DRUGS (5)
  1. JANUVIA [Suspect]
     Active Substance: SITAGLIPTIN PHOSPHATE
     Indication: Diabetes mellitus
     Dosage: 100MG/ ONCE A DAY
     Route: 048
     Dates: end: 20220202
  2. LISINOPRIL [Concomitant]
     Active Substance: LISINOPRIL
  3. ASPIRIN [Concomitant]
     Active Substance: ASPIRIN
  4. ACTOS [Concomitant]
     Active Substance: PIOGLITAZONE HYDROCHLORIDE
  5. LODIPINE [LACIDIPINE] [Concomitant]

REACTIONS (1)
  - Blood glucose fluctuation [Unknown]
